FAERS Safety Report 4654534-5 (Version None)
Quarter: 2005Q2

REPORT INFORMATION
  Report Type: 
  Country: None (occurrence: None)
  Receive Date: 20050504
  Receipt Date: 20050504
  Transmission Date: 20051028
  Serious: No
  Sender: FDA-Public Use
  Company Number: None

PATIENT
  Sex: Female
  Weight: 50.3493 kg

DRUGS (5)
  1. IVERMECTIN [Suspect]
     Indication: ACARODERMATITIS
     Dosage: 200MCG/KG 60 FOR 100LBS 8X TOTAL
     Dates: start: 20040401, end: 20050301
  2. EURAX [Concomitant]
  3. PEMTHRINS [Concomitant]
  4. LINDANE [Concomitant]
  5. SULFUR [Concomitant]

REACTIONS (5)
  - LYMPHADENOPATHY [None]
  - LYMPHOEDEMA [None]
  - TACHYCARDIA [None]
  - TREMOR [None]
  - VASCULITIS [None]
